FAERS Safety Report 12158993 (Version 1)
Quarter: 2016Q1

REPORT INFORMATION
  Report Type: Spontaneous
  Country: US (occurrence: US)
  Receive Date: 20160308
  Receipt Date: 20160308
  Transmission Date: 20160526
  Serious: No
  Sender: FDA-Public Use
  Company Number: US-ELI_LILLY_AND_COMPANY-US201602009043

PATIENT
  Age: 53 Year
  Sex: Male

DRUGS (2)
  1. FORTEO [Suspect]
     Active Substance: TERIPARATIDE
     Indication: BONE DISORDER
     Dosage: UNK, QD
     Route: 065
     Dates: start: 201501
  2. FORTEO [Suspect]
     Active Substance: TERIPARATIDE
     Indication: ARTHROPATHY

REACTIONS (5)
  - Off label use [Unknown]
  - Bone disorder [Unknown]
  - Arthropathy [Unknown]
  - Drug dose omission [Unknown]
  - Muscle disorder [Unknown]

NARRATIVE: CASE EVENT DATE: 201501
